FAERS Safety Report 23297993 (Version 2)
Quarter: 2023Q4

REPORT INFORMATION
  Report Type: Spontaneous
  Country: US (occurrence: US)
  Receive Date: 20231214
  Receipt Date: 20231219
  Transmission Date: 20240109
  Serious: No
  Sender: FDA-Public Use
  Company Number: US-ABBVIE-5530783

PATIENT
  Age: 87 Year
  Sex: Female
  Weight: 65.77 kg

DRUGS (3)
  1. RESTASIS [Suspect]
     Active Substance: CYCLOSPORINE
     Indication: Dry eye
     Dosage: 05.5%
     Route: 047
     Dates: start: 202111, end: 202111
  2. REFRESH CLASSIC [Suspect]
     Active Substance: POLYVINYL ALCOHOL\POVIDONE
     Indication: Dry eye
     Dosage: TIME INTERVAL: AS NECESSARY
     Dates: start: 202111
  3. RETAINE PM [Concomitant]
     Active Substance: MINERAL OIL\PETROLATUM
     Indication: Dry eye

REACTIONS (7)
  - Eye irritation [Unknown]
  - Vision blurred [Unknown]
  - Eye irritation [Recovered/Resolved]
  - Vision blurred [Recovered/Resolved]
  - Eye pain [Recovered/Resolved]
  - Foreign body sensation in eyes [Unknown]
  - Eye pain [Unknown]

NARRATIVE: CASE EVENT DATE: 20211101
